FAERS Safety Report 23080444 (Version 1)
Quarter: 2023Q4

REPORT INFORMATION
  Report Type: Spontaneous
  Country: MA (occurrence: MA)
  Receive Date: 20231018
  Receipt Date: 20231018
  Transmission Date: 20240110
  Serious: Yes (Other)
  Sender: FDA-Public Use
  Company Number: MA-AMGEN-MARSP2023183669

PATIENT
  Sex: Female

DRUGS (1)
  1. ADALIMUMAB [Suspect]
     Active Substance: ADALIMUMAB\ISOPROPYL ALCOHOL
     Indication: Takayasu^s arteritis
     Dosage: UNK
     Route: 065

REACTIONS (5)
  - Abortion [Unknown]
  - Drug effective for unapproved indication [Unknown]
  - Pre-eclampsia [Unknown]
  - Off label use [Unknown]
  - Maternal exposure during pregnancy [Unknown]
